FAERS Safety Report 17460142 (Version 1)
Quarter: 2020Q1

REPORT INFORMATION
  Report Type: Spontaneous
  Country: US (occurrence: US)
  Receive Date: 20200226
  Receipt Date: 20200226
  Transmission Date: 20200409
  Serious: No
  Sender: FDA-Public Use
  Company Number: US-PFIZER INC-2020082641

PATIENT

DRUGS (1)
  1. CELEBREX [Suspect]
     Active Substance: CELECOXIB
     Dosage: UNK UNK, 2X/DAY (QUANTITY FOR 90 DAYS: 180)

REACTIONS (2)
  - Pain [Unknown]
  - Impaired work ability [Unknown]
